FAERS Safety Report 20174568 (Version 1)
Quarter: 2021Q4

REPORT INFORMATION
  Report Type: Spontaneous
  Country: US (occurrence: US)
  Receive Date: 20211213
  Receipt Date: 20211213
  Transmission Date: 20220303
  Serious: No
  Sender: FDA-Public Use
  Company Number: US-GILEAD-2021-0556293

PATIENT

DRUGS (1)
  1. VIREAD [Suspect]
     Active Substance: TENOFOVIR DISOPROXIL FUMARATE
     Indication: HIV-associated neurocognitive disorder
     Route: 065

REACTIONS (5)
  - Nervous system disorder [Unknown]
  - Disturbance in attention [Unknown]
  - Reading disorder [Unknown]
  - Gait disturbance [Unknown]
  - Speech disorder [Unknown]
